FAERS Safety Report 7898917-9 (Version None)
Quarter: 2011Q4

REPORT INFORMATION
  Report Type: 
  Country: None (occurrence: None)
  Receive Date: 20111107
  Receipt Date: 20111102
  Transmission Date: 20120403
  Serious: Yes (Death, Other)
  Sender: FDA-Public Use
  Company Number: JP-ABBOTT-11P-087-0854864-00

PATIENT
  Sex: Female
  Weight: 34 kg

DRUGS (13)
  1. PREDNISOLONE [Concomitant]
     Route: 048
     Dates: start: 20100831, end: 20101002
  2. METHOTREXATE [Concomitant]
     Indication: RHEUMATOID ARTHRITIS
     Dates: start: 20070201, end: 20100709
  3. METHOTREXATE [Concomitant]
     Dates: start: 20100710, end: 20100807
  4. PREDNISOLONE [Concomitant]
     Indication: RHEUMATOID ARTHRITIS
     Route: 048
     Dates: start: 20051001, end: 20100707
  5. PREDNISOLONE [Concomitant]
     Route: 048
     Dates: start: 20100708, end: 20100830
  6. PREDNISOLONE [Concomitant]
     Route: 048
     Dates: start: 20101003
  7. NIFEDIPINE [Concomitant]
     Indication: HYPERTENSION
     Route: 048
     Dates: start: 20091001
  8. ADALIMUMAB [Suspect]
     Indication: RHEUMATOID ARTHRITIS
     Dates: start: 20100819, end: 20100903
  9. FOLIC ACID [Concomitant]
     Indication: RHEUMATOID ARTHRITIS
     Route: 048
     Dates: start: 20070201, end: 20100808
  10. TRICHLORMETHIAZIDE [Concomitant]
     Indication: HYPERTENSION
     Route: 048
     Dates: start: 20070201
  11. RABEPRAZOLE SODIUM [Concomitant]
     Indication: GASTRIC ULCER
     Route: 048
     Dates: start: 20070201
  12. TEPRENONE [Concomitant]
     Indication: GASTRIC ULCER
     Route: 048
     Dates: start: 20070201
  13. MAGNESIUM OXIDE [Concomitant]
     Indication: CONSTIPATION
     Route: 048
     Dates: start: 20070201

REACTIONS (4)
  - IGA NEPHROPATHY [None]
  - GLOMERULONEPHRITIS RAPIDLY PROGRESSIVE [None]
  - NEPHROPATHY [None]
  - STAPHYLOCOCCAL SEPSIS [None]
